FAERS Safety Report 7356178-3 (Version None)
Quarter: 2011Q1

REPORT INFORMATION
  Report Type: 
  Country: None (occurrence: None)
  Receive Date: 20110316
  Receipt Date: 20110308
  Transmission Date: 20110831
  Serious: Yes (Other)
  Sender: FDA-Public Use
  Company Number: GR-PFIZER INC-2011018128

PATIENT
  Age: 36 Year
  Sex: Female
  Weight: 57 kg

DRUGS (8)
  1. CELEBREX [Interacting]
     Indication: INTERVERTEBRAL DISC PROTRUSION
     Dosage: 1 DF, 1X/DAY, TAKEN IN THE MORNING
     Route: 048
     Dates: start: 20100413, end: 20100423
  2. GABAPENTIN [Interacting]
     Dosage: 1 DF, 1X/DAY
     Route: 048
     Dates: start: 20100420, end: 20100425
  3. PRILOSEC [Interacting]
     Indication: PROPHYLAXIS AGAINST GASTROINTESTINAL ULCER
     Dosage: 1 DF, 1X/DAY
     Route: 048
     Dates: start: 20100409, end: 20100419
  4. FELDENE [Interacting]
     Indication: INTERVERTEBRAL DISC PROTRUSION
     Dosage: 1 DF, UNK
     Route: 048
     Dates: start: 20100420, end: 20100425
  5. MELOXICAM [Interacting]
     Indication: INTERVERTEBRAL DISC PROTRUSION
     Dosage: 1 DF, UNK
     Route: 048
     Dates: start: 20100410, end: 20100410
  6. NORGESIC [Interacting]
     Indication: INTERVERTEBRAL DISC PROTRUSION
     Dosage: 1 DF, UNK
     Route: 048
     Dates: start: 20100409, end: 20100411
  7. CELESTONE SOLUSPAN [Interacting]
     Indication: INTERVERTEBRAL DISC PROTRUSION
     Dosage: 1 DF, UNK
     Route: 030
     Dates: start: 20100413, end: 20100423
  8. DYNASTAT [Suspect]
     Indication: INTERVERTEBRAL DISC PROTRUSION
     Dosage: 1 DF, 1X/DAY, TAKEN IN THE MORNING
     Route: 030
     Dates: start: 20100413, end: 20100423

REACTIONS (2)
  - ABORTION SPONTANEOUS [None]
  - DRUG INTERACTION [None]
